FAERS Safety Report 14238334 (Version 1)
Quarter: 2017Q4

REPORT INFORMATION
  Report Type: Spontaneous
  Country: US (occurrence: US)
  Receive Date: 20171130
  Receipt Date: 20171130
  Transmission Date: 20180321
  Serious: No
  Sender: FDA-Public Use
  Company Number: US-PFIZER INC-2017510420

PATIENT
  Sex: Female

DRUGS (1)
  1. ATROPINE SULFATE/DIPHENOXYLATE HYDROCHLORIDE [Suspect]
     Active Substance: ATROPINE SULFATE\DIPHENOXYLATE HYDROCHLORIDE
     Dosage: 4 DF, DAILY (2 TABLETS IN THE MORNING AND 2 IN THE EVENING)

REACTIONS (4)
  - Malaise [Unknown]
  - Product taste abnormal [Unknown]
  - Product shape issue [Unknown]
  - Poor quality drug administered [Unknown]
